FAERS Safety Report 5072841-1 (Version None)
Quarter: 2006Q3

REPORT INFORMATION
  Report Type: 
  Country: None (occurrence: None)
  Receive Date: 20060802
  Receipt Date: 20060721
  Transmission Date: 20061208
  Serious: Yes (Hospitalization, Other)
  Sender: FDA-Public Use
  Company Number: 06-0088PO

PATIENT
  Age: 41 Year
  Sex: Female

DRUGS (1)
  1. MEFENAMIC ACID [Suspect]
     Indication: ENDOMETRIOSIS
     Dosage: 500 MG, PRN, PO
     Route: 048
     Dates: start: 20060301, end: 20060701

REACTIONS (5)
  - NAUSEA [None]
  - NERVOUSNESS [None]
  - OVARIAN CYST [None]
  - STOMACH DISCOMFORT [None]
  - TUBAL LIGATION [None]
